FAERS Safety Report 6890048-X (Version None)
Quarter: 2010Q3

REPORT INFORMATION
  Report Type: 
  Country: None (occurrence: None)
  Receive Date: 20100730
  Receipt Date: 20080729
  Transmission Date: 20110219
  Serious: No
  Sender: FDA-Public Use
  Company Number: US-PFIZER INC-2008062088

PATIENT
  Sex: Male
  Weight: 75 kg

DRUGS (8)
  1. LIPITOR [Suspect]
     Indication: BLOOD CHOLESTEROL INCREASED
     Dates: start: 19970901, end: 20080701
  2. PLAVIX [Concomitant]
  3. LISINOPRIL [Concomitant]
  4. AEROBID [Concomitant]
  5. ATIVAN [Concomitant]
  6. SYNTHROID [Concomitant]
  7. TOPAMAX [Concomitant]
  8. ALL OTHER THERAPEUTIC PRODUCTS [Concomitant]

REACTIONS (3)
  - BENIGN PROSTATIC HYPERPLASIA [None]
  - BLOOD CHOLESTEROL INCREASED [None]
  - DRUG INEFFECTIVE [None]
